FAERS Safety Report 8827759 (Version 1)
Quarter: 2012Q4

REPORT INFORMATION
  Report Type: 
  Country: US (occurrence: US)
  Receive Date: 20121005
  Receipt Date: 20121005
  Transmission Date: 20130627
  Serious: Yes (Hospitalization, Other)
  Sender: FDA-Public Use
  Company Number: US-ROCHE-1134750

PATIENT
  Sex: Male

DRUGS (20)
  1. RITUXAN [Suspect]
     Indication: CHRONIC LYMPHOCYTIC LEUKAEMIA
     Route: 065
     Dates: start: 20000509
  2. FLUDARABINE [Concomitant]
  3. CYTOXAN [Concomitant]
  4. CYCLOPHOSPHAMIDE [Concomitant]
  5. HYDROXYDAUNORUBICIN [Concomitant]
  6. PREDNISONE [Concomitant]
  7. ONCOVIN [Concomitant]
  8. AUGMENTIN [Concomitant]
     Route: 065
  9. BIAXIN (UNITED STATES) [Concomitant]
  10. CIPRO [Concomitant]
     Dosage: every 12 hr for seven day
     Route: 065
  11. HYTRIN [Concomitant]
  12. LOMOTIL [Concomitant]
  13. GUIATUSS [Concomitant]
  14. ZOVIRAX [Concomitant]
     Route: 065
  15. IFOSFAMIDE [Concomitant]
  16. ETOPOSIDE [Concomitant]
  17. DECADRON [Concomitant]
  18. MESNA [Concomitant]
  19. LIDOCAINE [Concomitant]
  20. IFEX [Concomitant]

REACTIONS (8)
  - Diarrhoea [Unknown]
  - Dehydration [Unknown]
  - VIIth nerve paralysis [Unknown]
  - Lymphadenopathy [Unknown]
  - Herpes simplex [Unknown]
  - Cough [Unknown]
  - Tongue ulceration [Unknown]
  - Cheilitis [Unknown]
